FAERS Safety Report 9671612 (Version 1)
Quarter: 2013Q4

REPORT INFORMATION
  Report Type: Spontaneous
  Country: FR (occurrence: None)
  Receive Date: 20131104
  Receipt Date: 20131104
  Transmission Date: 20140711
  Serious: Yes (Hospitalization)
  Sender: FDA-Public Use
  Company Number: DSM02013-01006

PATIENT
  Age: 55 Year
  Sex: Male

DRUGS (7)
  1. SEVIKAR (OLMESARTAN MEDOXOMIL, AMLODIPINE BESILATE) (TABLET) (OLMESARTAN MEDOXOMIL, AMLODIPINE BESILATE) [Suspect]
     Indication: HYPERTENSION
     Dosage: 1 IN 1 D, ORAL
     Route: 048
     Dates: end: 201309
  2. PRAVASTATIN SODIUM [Suspect]
     Indication: PRODUCT USED FOR UNKNOWN INDICATION
     Dosage: 1 IN 1 DAY, ORAL
     Route: 048
  3. KARDEGIC (ACETYLSALICYLATE LYSINE) (75 MILLIGRAM, ORAL POWDER) (ACETYLSALICYLATE LYSINE) [Concomitant]
  4. LANSOPRAZOLE [Suspect]
     Dosage: 1 IN 1 D, ORAL
     Route: 048
     Dates: end: 201309
  5. METFORMINE [Suspect]
     Indication: PRODUCT USED FOR UNKNOWN INDICATION
     Dosage: 3 GM ( 1 GRAM 3 IN 1 D)
     Route: 048
     Dates: end: 201309
  6. TEMERIT DUO [Suspect]
     Indication: PRODUCT USED FOR UNKNOWN INDICATION
     Dosage: 1 IN 1 D, ORAL
     Route: 048
     Dates: end: 201309
  7. ACARBOSE [Suspect]
     Indication: PRODUCT USED FOR UNKNOWN INDICATION
     Dosage: 3 IN 1 D
     Route: 048
     Dates: end: 201309

REACTIONS (7)
  - Tubulointerstitial nephritis [None]
  - Lactic acidosis [None]
  - Erythema [None]
  - Abdominal pain upper [None]
  - Nausea [None]
  - Vomiting [None]
  - Decreased appetite [None]
